FAERS Safety Report 19656066 (Version 1)
Quarter: 2021Q3

REPORT INFORMATION
  Report Type: Spontaneous
  Country: FR (occurrence: FR)
  Receive Date: 20210804
  Receipt Date: 20210804
  Transmission Date: 20211014
  Serious: Yes (Congenital Anomaly)
  Sender: FDA-Public Use
  Company Number: FR-MYLANLABS-2021M1047166

PATIENT
  Sex: Female
  Weight: 2.23 kg

DRUGS (2)
  1. RAMIPRIL. [Suspect]
     Active Substance: RAMIPRIL
     Indication: HYPERTENSION
     Dosage: 5 MILLIGRAM, QD
     Route: 064
     Dates: start: 201801, end: 20180831
  2. LEVOTHYROX [Suspect]
     Active Substance: LEVOTHYROXINE
     Indication: HYPOTHYROIDISM
     Dosage: 1 DOSAGE FORM, QOD, LEVOTHYROX 150 ET 125 1 JOUR SUR 2
     Route: 064
     Dates: start: 20180409, end: 20181219

REACTIONS (1)
  - Congenital renal cyst [Recovering/Resolving]

NARRATIVE: CASE EVENT DATE: 20180831
